FAERS Safety Report 16000187 (Version 1)
Quarter: 2019Q1

REPORT INFORMATION
  Report Type: Spontaneous
  Country: AU (occurrence: AU)
  Receive Date: 20190225
  Receipt Date: 20190225
  Transmission Date: 20190418
  Serious: Yes (Other)
  Sender: FDA-Public Use
  Company Number: AU-BAYER-2019-035552

PATIENT

DRUGS (3)
  1. NEXAVAR [Suspect]
     Active Substance: SORAFENIB
     Dosage: 200 MG, QD
     Route: 048
     Dates: start: 201710
  2. NEXAVAR [Suspect]
     Active Substance: SORAFENIB
     Dosage: 200 MG, BID
     Route: 048
  3. NEXAVAR [Suspect]
     Active Substance: SORAFENIB
     Dosage: 200 MG, BID
     Route: 048
     Dates: start: 201707

REACTIONS (10)
  - Lethargy [None]
  - Pain in extremity [None]
  - Diarrhoea [None]
  - Rash [None]
  - Hypertension [None]
  - Neoplasm progression [None]
  - Influenza like illness [None]
  - Fatigue [None]
  - Pain of skin [None]
  - Limb discomfort [None]
